FAERS Safety Report 24561057 (Version 1)
Quarter: 2024Q4

REPORT INFORMATION
  Report Type: Spontaneous
  Country: US (occurrence: None)
  Receive Date: 20241028
  Receipt Date: 20241028
  Transmission Date: 20250115
  Serious: Yes (Other)
  Sender: Public
  Company Number: None

PATIENT
  Age: 49 Year
  Sex: Female
  Weight: 69.3 kg

DRUGS (2)
  1. SIMPONI ARIA [Suspect]
     Active Substance: GOLIMUMAB
     Indication: Psoriatic arthropathy
     Dosage: OTHER FREQUENCY : EVERY 8 WEEKS;?
     Route: 042
     Dates: start: 20240709, end: 20241007
  2. SIMPONI ARIA [Concomitant]
     Active Substance: GOLIMUMAB
     Dates: start: 20240709, end: 20241007

REACTIONS (6)
  - Lip swelling [None]
  - Lip erythema [None]
  - Chapped lips [None]
  - Rash [None]
  - Lip haemorrhage [None]
  - Urticaria [None]

NARRATIVE: CASE EVENT DATE: 20240817
